FAERS Safety Report 4316097-3 (Version None)
Quarter: 2004Q1

REPORT INFORMATION
  Report Type: 
  Country: None (occurrence: None)
  Receive Date: 20040305
  Receipt Date: 20040217
  Transmission Date: 20041129
  Serious: Yes (Hospitalization)
  Sender: FDA-Public Use
  Company Number: B0321741B

PATIENT
  Age: 37 Year
  Sex: Female

DRUGS (2)
  1. AMOXIL [Suspect]
  2. BETAMETHASONE [Concomitant]

REACTIONS (11)
  - ABDOMINAL PAIN LOWER [None]
  - AMNIOCENTESIS ABNORMAL [None]
  - BLOOD FIBRINOGEN INCREASED [None]
  - C-REACTIVE PROTEIN INCREASED [None]
  - CAESAREAN SECTION [None]
  - CHORIOAMNIONITIS [None]
  - COMPLICATIONS OF MATERNAL EXPOSURE TO THERAPEUTIC DRUGS [None]
  - ENDOMETRITIS [None]
  - LEUKOCYTOSIS [None]
  - MORGANELLA INFECTION [None]
  - PYREXIA [None]
